FAERS Safety Report 21839127 (Version 2)
Quarter: 2023Q1

REPORT INFORMATION
  Report Type: Spontaneous
  Country: US (occurrence: US)
  Receive Date: 20230109
  Receipt Date: 20230117
  Transmission Date: 20230417
  Serious: Yes (Death, Life-Threatening, Hospitalization, Other)
  Sender: FDA-Public Use
  Company Number: US-JUBILANT CADISTA PHARMACEUTICALS-2022JUB00510

PATIENT
  Age: 59 Year
  Sex: Male

DRUGS (2)
  1. PREDNISONE [Suspect]
     Active Substance: PREDNISONE
     Indication: Immunosuppressant drug therapy
     Dosage: UNK
  2. TACROLIMUS [Suspect]
     Active Substance: TACROLIMUS
     Indication: Immunosuppressant drug therapy
     Dosage: UNK

REACTIONS (7)
  - Encephalopathy [Fatal]
  - Brain oedema [Fatal]
  - Cardiac arrest [Fatal]
  - Pneumonia [Fatal]
  - New onset refractory status epilepticus [Fatal]
  - Hyperammonaemia [Fatal]
  - Ureaplasma infection [Fatal]
